FAERS Safety Report 14618750 (Version 1)
Quarter: 2018Q1

REPORT INFORMATION
  Report Type: Report from Study
  Country: CA (occurrence: CA)
  Receive Date: 20180309
  Receipt Date: 20180309
  Transmission Date: 20180509
  Serious: Yes (Other)
  Sender: FDA-Public Use
  Company Number: CA-JNJFOC-20170814796

PATIENT
  Age: 46 Year
  Sex: Female

DRUGS (10)
  1. STELARA [Suspect]
     Active Substance: USTEKINUMAB
     Indication: CROHN^S DISEASE
     Dosage: STRENGTH = 130 MG
     Route: 042
     Dates: start: 20170309
  2. TRAMACET [Concomitant]
     Active Substance: ACETAMINOPHEN\TRAMADOL
     Indication: FIBROMYALGIA
     Route: 065
  3. TRAMACET [Concomitant]
     Active Substance: ACETAMINOPHEN\TRAMADOL
     Indication: CROHN^S DISEASE
     Route: 065
  4. VITAMIN B12 [Concomitant]
     Active Substance: CYANOCOBALAMIN
     Route: 065
  5. CIPRALEX [Concomitant]
     Active Substance: ESCITALOPRAM OXALATE
     Indication: DEPRESSION
     Route: 065
  6. MAGNESIUM [Concomitant]
     Active Substance: MAGNESIUM
     Route: 065
  7. STELARA [Suspect]
     Active Substance: USTEKINUMAB
     Indication: CROHN^S DISEASE
     Route: 042
  8. LYRICA [Concomitant]
     Active Substance: PREGABALIN
     Route: 065
  9. CYCLOBENZAPRINE. [Concomitant]
     Active Substance: CYCLOBENZAPRINE
     Indication: FIBROMYALGIA
     Route: 065
  10. POTASSIUM [Concomitant]
     Active Substance: POTASSIUM
     Route: 065

REACTIONS (4)
  - Intestinal resection [Unknown]
  - Incision site complication [Unknown]
  - Incision site pain [Unknown]
  - Post procedural infection [Not Recovered/Not Resolved]

NARRATIVE: CASE EVENT DATE: 2017
